FAERS Safety Report 19132109 (Version 1)
Quarter: 2021Q2

REPORT INFORMATION
  Report Type: Spontaneous
  Country: FR (occurrence: FR)
  Receive Date: 20210413
  Receipt Date: 20210413
  Transmission Date: 20210717
  Serious: Yes (Hospitalization)
  Sender: FDA-Public Use
  Company Number: FR-TEVA-2021-FR-1899865

PATIENT
  Age: 83 Year
  Sex: Male
  Weight: 80 kg

DRUGS (12)
  1. NEFOPAM (CHLORHYDRATE DE) [Suspect]
     Active Substance: NEFOPAM HYDROCHLORIDE
     Indication: PAIN
     Route: 030
     Dates: start: 20210119, end: 20210131
  2. HEPARINE CALCIQUE [Suspect]
     Active Substance: HEPARIN CALCIUM
     Indication: PULMONARY EMBOLISM
     Route: 058
     Dates: start: 20210120, end: 20210201
  3. IOMERON [Suspect]
     Active Substance: IOMEPROL
     Indication: COMPUTERISED TOMOGRAM
     Dosage: 1 DF
     Route: 042
     Dates: start: 20210129
  4. IRBESARTAN. [Concomitant]
     Active Substance: IRBESARTAN
     Dosage: 300 MG
     Route: 048
  5. RESITUNE 75 MG, COMPRIME GASTRO?RESISTANT [Concomitant]
     Active Substance: ASPIRIN
     Dosage: 75 MG
     Route: 048
  6. PREGABALINE [Concomitant]
     Active Substance: PREGABALIN
     Route: 048
     Dates: start: 20210120
  7. FLUINDIONE [Suspect]
     Active Substance: FLUINDIONE
     Indication: PULMONARY EMBOLISM
     Route: 048
     Dates: start: 20210128, end: 20210204
  8. FUROSEMIDE. [Concomitant]
     Active Substance: FUROSEMIDE
     Dosage: 20 MG
     Route: 048
  9. ONDANSETRON [Concomitant]
     Active Substance: ONDANSETRON
     Route: 042
     Dates: start: 20210119
  10. MORPHINE [Concomitant]
     Active Substance: MORPHINE
     Route: 048
     Dates: start: 20210120
  11. CIPROFLOXACINE [Suspect]
     Active Substance: CIPROFLOXACIN
     Indication: PROSTATIC ABSCESS
     Dosage: 500 MG
     Route: 048
     Dates: start: 20210131, end: 20210131
  12. EZETIMIBE ACCORD [Concomitant]
     Route: 048

REACTIONS (2)
  - Rash pruritic [Recovered/Resolved]
  - Eosinophilia [Recovered/Resolved]

NARRATIVE: CASE EVENT DATE: 20210131
